FAERS Safety Report 5147816-4 (Version None)
Quarter: 2006Q4

REPORT INFORMATION
  Report Type: 
  Country: None (occurrence: None)
  Receive Date: 20061107
  Receipt Date: 20061107
  Transmission Date: 20070319
  Serious: Yes (Other)
  Sender: FDA-Public Use
  Company Number: None

PATIENT
  Age: 46 Year
  Sex: Male
  Weight: 63.5036 kg

DRUGS (1)
  1. LEVAQUIN [Suspect]
     Indication: PROSTATITIS
     Dosage: 1 1 PO
     Route: 048
     Dates: start: 20061102, end: 20061103

REACTIONS (8)
  - ARTHRALGIA [None]
  - ASTHENIA [None]
  - DRUG HYPERSENSITIVITY [None]
  - GAIT DISTURBANCE [None]
  - GENERAL PHYSICAL HEALTH DETERIORATION [None]
  - LIGAMENT DISORDER [None]
  - PHARMACEUTICAL PRODUCT COMPLAINT [None]
  - SENSORY DISTURBANCE [None]
